FAERS Safety Report 11380035 (Version 37)
Quarter: 2020Q3

REPORT INFORMATION
  Report Type: Report from Study
  Country: CA (occurrence: CA)
  Receive Date: 20150814
  Receipt Date: 20200917
  Transmission Date: 20201102
  Serious: Yes (Hospitalization, Other)
  Sender: FDA-Public Use
  Company Number: PHHY2013CA086553

PATIENT
  Age: 62 Year
  Sex: Female

DRUGS (10)
  1. METOPROLOL. [Suspect]
     Active Substance: METOPROLOL
     Indication: ATRIAL FIBRILLATION
     Dosage: 75 MG, BID
     Route: 065
     Dates: end: 201512
  2. SYNTHROID [Concomitant]
     Active Substance: LEVOTHYROXINE SODIUM
     Indication: PRODUCT USED FOR UNKNOWN INDICATION
     Dosage: UNK
     Route: 065
  3. NORVASC [Concomitant]
     Active Substance: AMLODIPINE BESYLATE
     Indication: PRODUCT USED FOR UNKNOWN INDICATION
     Dosage: 7.5 MG, UNK
     Route: 065
  4. MONOPRIL [Concomitant]
     Active Substance: FOSINOPRIL SODIUM
     Indication: PRODUCT USED FOR UNKNOWN INDICATION
     Dosage: UNK
     Route: 065
  5. SANDOSTATIN LAR DEPOT [Suspect]
     Active Substance: OCTREOTIDE ACETATE
     Dosage: 20 MG, Q2MO  (EVERY 8 WEEKS)
     Route: 030
     Dates: start: 20150605
  6. A S A [Concomitant]
     Indication: PRODUCT USED FOR UNKNOWN INDICATION
     Dosage: UNK
     Route: 065
  7. SANDOSTATIN LAR DEPOT [Suspect]
     Active Substance: OCTREOTIDE ACETATE
     Indication: INSULINOMA
     Dosage: 20 MG, (EVERY 6 WEEKS)
     Route: 030
     Dates: start: 20051005
  8. SANDOSTATIN LAR DEPOT [Suspect]
     Active Substance: OCTREOTIDE ACETATE
     Dosage: 10 MG (8 WEEKS)
     Route: 030
     Dates: start: 20051005
  9. POTASSIUM [Concomitant]
     Active Substance: POTASSIUM
     Indication: PRODUCT USED FOR UNKNOWN INDICATION
     Dosage: UNK
     Route: 065
  10. HYDROCHLOROTHIAZIDE. [Concomitant]
     Active Substance: HYDROCHLOROTHIAZIDE
     Indication: PRODUCT USED FOR UNKNOWN INDICATION
     Dosage: UNK
     Route: 065

REACTIONS (20)
  - Heart rate decreased [Unknown]
  - Micturition urgency [Unknown]
  - Blood glucose increased [Unknown]
  - Atrial fibrillation [Recovering/Resolving]
  - Dyspnoea [Not Recovered/Not Resolved]
  - Peripheral swelling [Unknown]
  - Blood pressure increased [Unknown]
  - Injection site haemorrhage [Unknown]
  - Glycosylated haemoglobin increased [Unknown]
  - Metastasis [Unknown]
  - Hypoglycaemia [Recovering/Resolving]
  - Blindness [Recovering/Resolving]
  - Blood pressure systolic increased [Unknown]
  - Body temperature decreased [Unknown]
  - Feeling abnormal [Recovering/Resolving]
  - Dehydration [Unknown]
  - Inappropriate schedule of product administration [Unknown]
  - Blood pressure diastolic decreased [Unknown]
  - Heart rate irregular [Unknown]
  - Osteoarthritis [Unknown]

NARRATIVE: CASE EVENT DATE: 20051005
